FAERS Safety Report 8838364 (Version 1)
Quarter: 2012Q4

REPORT INFORMATION
  Report Type: Report from Study
  Country: US (occurrence: US)
  Receive Date: 20121012
  Receipt Date: 20121012
  Transmission Date: 20130627
  Serious: Yes (Other)
  Sender: FDA-Public Use
  Company Number: US-JNJFOC-20121006221

PATIENT
  Age: 25 Year

DRUGS (2)
  1. REMICADE [Suspect]
     Indication: COLITIS ULCERATIVE
     Dosage: reinitiated
     Route: 042
     Dates: start: 2012
  2. REMICADE [Suspect]
     Indication: COLITIS ULCERATIVE
     Dosage: 5th infusion
     Route: 042

REACTIONS (12)
  - Respiratory arrest [Recovered/Resolved]
  - Arthritis [Not Recovered/Not Resolved]
  - Infusion related reaction [Recovered/Resolved]
  - Chest discomfort [Recovered/Resolved]
  - Blood pressure decreased [Recovered/Resolved]
  - Pyrexia [Recovered/Resolved]
  - Arthralgia [Not Recovered/Not Resolved]
  - Activities of daily living impaired [Not Recovered/Not Resolved]
  - Pain in extremity [Not Recovered/Not Resolved]
  - Alopecia [Unknown]
  - Insomnia [Not Recovered/Not Resolved]
  - Fear [Unknown]
